FAERS Safety Report 6426222-6 (Version None)
Quarter: 2009Q4

REPORT INFORMATION
  Report Type: 
  Country: None (occurrence: None)
  Receive Date: 20091030
  Receipt Date: 20091022
  Transmission Date: 20100525
  Serious: Yes (Hospitalization)
  Sender: FDA-Public Use
  Company Number: 2009AL006778

PATIENT
  Age: 19 Year
  Sex: Male
  Weight: 62 kg

DRUGS (2)
  1. VENLAFAXINE HCL [Suspect]
     Indication: GENERALISED ANXIETY DISORDER
     Dosage: 150 MG;QD
  2. IMIPRAMINE [Concomitant]

REACTIONS (3)
  - BLOOD LUTEINISING HORMONE INCREASED [None]
  - BLOOD PROLACTIN INCREASED [None]
  - GYNAECOMASTIA [None]
